FAERS Safety Report 14545157 (Version 3)
Quarter: 2018Q1

REPORT INFORMATION
  Report Type: Spontaneous
  Country: US (occurrence: US)
  Receive Date: 20180218
  Receipt Date: 20180331
  Transmission Date: 20180509
  Serious: No
  Sender: FDA-Public Use
  Company Number: US-JNJFOC-20180204262

PATIENT
  Age: 57 Year
  Sex: Male
  Weight: 90.72 kg

DRUGS (3)
  1. OMEPRAZOLE. [Concomitant]
     Active Substance: OMEPRAZOLE
     Indication: GASTROOESOPHAGEAL REFLUX DISEASE
     Route: 065
  2. CELEBREX [Concomitant]
     Active Substance: CELECOXIB
     Indication: ARTHRALGIA
     Dosage: AS NEEDED
     Route: 065
  3. STELARA [Suspect]
     Active Substance: USTEKINUMAB
     Indication: PSORIASIS
     Dosage: IN 0.5 ML
     Route: 058
     Dates: start: 2015

REACTIONS (3)
  - Product use complaint [Unknown]
  - Drug dose omission [Unknown]
  - Syringe issue [Unknown]

NARRATIVE: CASE EVENT DATE: 20180130
